FAERS Safety Report 8173115-2 (Version None)
Quarter: 2012Q1

REPORT INFORMATION
  Report Type: 
  Country: None (occurrence: None)
  Receive Date: 20120229
  Receipt Date: 20120220
  Transmission Date: 20120608
  Serious: Yes (Hospitalization, Other)
  Sender: FDA-Public Use
  Company Number: CA-JNJFOC-20120210651

PATIENT
  Sex: Male
  Weight: 145 kg

DRUGS (6)
  1. ZOPICLONE [Concomitant]
     Route: 065
  2. CRESTOR [Concomitant]
     Route: 065
  3. REMICADE [Suspect]
     Indication: COLITIS ULCERATIVE
     Route: 042
     Dates: start: 20110501
  4. PANTOPRAZOLE SODIUM [Concomitant]
     Route: 065
  5. RISPERIDONE [Concomitant]
     Route: 065
  6. IMURAN [Concomitant]
     Route: 065

REACTIONS (3)
  - HEADACHE [None]
  - INFLUENZA [None]
  - TYPE 2 DIABETES MELLITUS [None]
